FAERS Safety Report 9372405 (Version 2)
Quarter: 2013Q3

REPORT INFORMATION
  Report Type: Spontaneous
  Country: US (occurrence: US)
  Receive Date: 20130627
  Receipt Date: 20130802
  Transmission Date: 20140515
  Serious: Yes (Hospitalization, Other)
  Sender: FDA-Public Use
  Company Number: US-009507513-1306USA012020

PATIENT
  Sex: Female

DRUGS (1)
  1. JANUVIA [Suspect]
     Indication: TYPE 2 DIABETES MELLITUS
     Dosage: 100 MG, ONCE DAILY
     Route: 048
     Dates: start: 201212, end: 201305

REACTIONS (4)
  - Dyspnoea [Recovering/Resolving]
  - Syncope [Recovering/Resolving]
  - Haemorrhage [Recovering/Resolving]
  - Pancreatitis acute [Recovering/Resolving]
